FAERS Safety Report 10334669 (Version 2)
Quarter: 2014Q3

REPORT INFORMATION
  Report Type: Spontaneous
  Country: US (occurrence: None)
  Receive Date: 20140721
  Receipt Date: 20140730
  Transmission Date: 20150326
  Serious: Yes (Life-Threatening, Hospitalization)
  Sender: FDA-Public Use
  Company Number: AUR-APL-2014-07734

PATIENT
  Age: 19 Year
  Sex: Male

DRUGS (1)
  1. AMOXICILLIN. [Suspect]
     Active Substance: AMOXICILLIN
     Indication: SINUSITIS

REACTIONS (10)
  - Thrombocytopenia [None]
  - Pulmonary oedema [None]
  - Pulmonary eosinophilia [None]
  - Hypersensitivity [None]
  - Pulmonary alveolar haemorrhage [None]
  - Drug reaction with eosinophilia and systemic symptoms [None]
  - Hepatitis [None]
  - Acute respiratory distress syndrome [None]
  - Lymphadenopathy [None]
  - Rash morbilliform [None]
